FAERS Safety Report 8349197-1 (Version None)
Quarter: 2012Q2

REPORT INFORMATION
  Report Type: 
  Country: None (occurrence: None)
  Receive Date: 20120508
  Receipt Date: 20120508
  Transmission Date: 20120825
  Serious: Yes (Disabling)
  Sender: FDA-Public Use
  Company Number: None

PATIENT
  Age: 55 Year
  Sex: Male
  Weight: 136.0791 kg

DRUGS (3)
  1. NIASPAN [Suspect]
     Indication: LIVER DISORDER
     Dosage: 2000 NIGHTLY
  2. SIMVASTATIN [Suspect]
     Indication: MYALGIA
     Dosage: 80 MG NIGHTLY
  3. SIMVASTATIN [Suspect]
     Indication: ARTHRALGIA
     Dosage: 80 MG NIGHTLY

REACTIONS (5)
  - LIVER DISORDER [None]
  - MUSCULOSKELETAL DISORDER [None]
  - MUSCULAR WEAKNESS [None]
  - NEUROPATHY PERIPHERAL [None]
  - MYALGIA [None]
